FAERS Safety Report 10717447 (Version 1)
Quarter: 2015Q1

REPORT INFORMATION
  Report Type: Spontaneous
  Country: AR (occurrence: AR)
  Receive Date: 20150116
  Receipt Date: 20150116
  Transmission Date: 20150721
  Serious: Yes (Other)
  Sender: FDA-Public Use
  Company Number: AR-PFIZER INC-2015016763

PATIENT
  Age: 3 Year
  Sex: Male

DRUGS (1)
  1. GENOTROPIN [Suspect]
     Active Substance: SOMATROPIN
     Indication: GROWTH HORMONE DEFICIENCY
     Dosage: 0.6 TO 1 MG, 7 TIMES PER WEEK
     Dates: start: 20090501

REACTIONS (3)
  - Mental retardation [Recovered/Resolved]
  - Speech disorder [Recovered/Resolved]
  - Developmental delay [Recovered/Resolved]

NARRATIVE: CASE EVENT DATE: 20111207
